FAERS Safety Report 9986467 (Version 1)
Quarter: 2014Q1

REPORT INFORMATION
  Report Type: Report from Study
  Country: US (occurrence: US)
  Receive Date: 20140307
  Receipt Date: 20140307
  Transmission Date: 20141002
  Serious: No
  Sender: FDA-Public Use
  Company Number: US-ABBVIE-13P-163-1082127-00

PATIENT
  Age: 63 Year
  Sex: Female

DRUGS (22)
  1. HUMIRA [Suspect]
     Indication: PSORIATIC ARTHROPATHY
     Dates: start: 20130425
  2. METHOTREXATE [Concomitant]
     Indication: PSORIATIC ARTHROPATHY
  3. FOLIC ACID [Concomitant]
     Indication: PRODUCT USED FOR UNKNOWN INDICATION
  4. ZANAFLEX [Concomitant]
     Indication: MUSCLE RELAXANT THERAPY
  5. LORTAB [Concomitant]
     Indication: PAIN
     Dosage: 10/500MG 1 TAB BID PRN
  6. LIDODERM PATCH [Concomitant]
     Indication: PAIN
  7. ZYRTEC [Concomitant]
     Indication: HYPERSENSITIVITY
  8. NORVASC [Concomitant]
     Indication: BLOOD PRESSURE
     Dosage: 5MG QPM
  9. LOSARTAN POTASSIUM [Concomitant]
     Indication: PRODUCT USED FOR UNKNOWN INDICATION
     Dosage: 100MG QPM
  10. NEXIUM [Concomitant]
     Indication: GASTROOESOPHAGEAL REFLUX DISEASE
  11. ESTRADIOL NORETHINDRONE [Concomitant]
     Indication: POSTMENOPAUSE
     Dosage: 0.5/1MG QPM
  12. LAMICTAL [Concomitant]
     Indication: BIPOLAR DISORDER
  13. FLUOXETINE [Concomitant]
     Indication: DEPRESSION
  14. KLONOPIN [Concomitant]
     Indication: ANXIETY
  15. ADDERALL [Concomitant]
     Indication: ATTENTION DEFICIT/HYPERACTIVITY DISORDER
  16. SUMATRIPTAN [Concomitant]
     Indication: MIGRAINE
  17. MARIATRIC MULTIPLE VITAMIN [Concomitant]
     Indication: PRODUCT USED FOR UNKNOWN INDICATION
  18. VITAMIN B [Concomitant]
     Indication: PRODUCT USED FOR UNKNOWN INDICATION
  19. VITAMIN B12 [Concomitant]
     Indication: PRODUCT USED FOR UNKNOWN INDICATION
  20. VITAMIN D [Concomitant]
     Indication: PRODUCT USED FOR UNKNOWN INDICATION
  21. IRON [Concomitant]
     Indication: PRODUCT USED FOR UNKNOWN INDICATION
  22. GLUCOSAMINE [Concomitant]
     Indication: PRODUCT USED FOR UNKNOWN INDICATION

REACTIONS (1)
  - Injection site haemorrhage [Recovered/Resolved]
